FAERS Safety Report 14520572 (Version 2)
Quarter: 2018Q1

REPORT INFORMATION
  Report Type: Report from Study
  Country: FR (occurrence: FR)
  Receive Date: 20180212
  Receipt Date: 20180215
  Transmission Date: 20180509
  Serious: Yes (Other)
  Sender: FDA-Public Use
  Company Number: FR-PFIZER INC-2018056321

PATIENT

DRUGS (2)
  1. IRINOTECAN HCL [Suspect]
     Active Substance: IRINOTECAN HYDROCHLORIDE
     Indication: GLIOBLASTOMA MULTIFORME
     Dosage: CYCLIC (1 CYCLE = 2 INJECTIONS OF BEVACIZUMAB + IRINOTECAN ON DAY 1 AND 15)
  2. BEVACIZUMAB. [Suspect]
     Active Substance: BEVACIZUMAB
     Indication: GLIOBLASTOMA MULTIFORME
     Dosage: 10 MG/KG, CYCLIC (1 CYCLE = 2 INJECTIONS OF BEVACIZUMAB + IRINOTECAN ON DAY 1 AND 15)

REACTIONS (2)
  - Toxicity to various agents [Unknown]
  - Cerebral haemorrhage [Unknown]
